FAERS Safety Report 21374004 (Version 1)
Quarter: 2022Q3

REPORT INFORMATION
  Report Type: Spontaneous
  Country: US (occurrence: US)
  Receive Date: 20220926
  Receipt Date: 20220926
  Transmission Date: 20221026
  Serious: Yes (Other)
  Sender: FDA-Public Use
  Company Number: US-BEH-2022149880

PATIENT
  Age: 38 Year
  Sex: Female

DRUGS (8)
  1. BERINERT [Suspect]
     Active Substance: HUMAN C1-ESTERASE INHIBITOR
     Indication: Hereditary angioedema
     Dosage: 1600 INTERNATIONAL UNIT, EVERY 3 DAYS
     Route: 042
     Dates: start: 20210602
  2. BERINERT [Suspect]
     Active Substance: HUMAN C1-ESTERASE INHIBITOR
     Indication: Hereditary angioedema
     Dosage: 1600 INTERNATIONAL UNIT, EVERY 3 DAYS
     Route: 042
     Dates: start: 20210602
  3. BERINERT [Suspect]
     Active Substance: HUMAN C1-ESTERASE INHIBITOR
     Indication: Hereditary angioedema
     Dosage: 1600 INTERNATIONAL UNIT, EVERY 3 DAYS
     Route: 042
     Dates: start: 20210602
  4. BERINERT [Suspect]
     Active Substance: HUMAN C1-ESTERASE INHIBITOR
     Indication: Hereditary angioedema
     Dosage: 1600 INTERNATIONAL UNIT, EVERY 3 DAYS
     Route: 042
     Dates: start: 20210602
  5. BERINERT [Suspect]
     Active Substance: HUMAN C1-ESTERASE INHIBITOR
     Indication: Prophylaxis
     Dosage: 1600 INTERNATIONAL UNIT, PRN
     Route: 042
     Dates: start: 20210602
  6. BERINERT [Suspect]
     Active Substance: HUMAN C1-ESTERASE INHIBITOR
     Indication: Prophylaxis
     Dosage: 1600 INTERNATIONAL UNIT, PRN
     Route: 042
     Dates: start: 20210602
  7. BERINERT [Suspect]
     Active Substance: HUMAN C1-ESTERASE INHIBITOR
     Indication: Prophylaxis
     Dosage: 1600 INTERNATIONAL UNIT, PRN
     Route: 042
     Dates: start: 20210602
  8. BERINERT [Suspect]
     Active Substance: HUMAN C1-ESTERASE INHIBITOR
     Indication: Prophylaxis
     Dosage: 1600 INTERNATIONAL UNIT, PRN
     Route: 042
     Dates: start: 20210602

REACTIONS (3)
  - Hereditary angioedema [Unknown]
  - No adverse event [Unknown]
  - Off label use [Unknown]

NARRATIVE: CASE EVENT DATE: 20220915
